FAERS Safety Report 19666654 (Version 4)
Quarter: 2023Q1

REPORT INFORMATION
  Report Type: Spontaneous
  Country: CN (occurrence: CN)
  Receive Date: 20210806
  Receipt Date: 20230106
  Transmission Date: 20230418
  Serious: Yes (Hospitalization, Other)
  Sender: FDA-Public Use
  Company Number: CN-MACLEODS PHARMACEUTICALS US LTD-MAC2021032106

PATIENT

DRUGS (7)
  1. CELECOXIB [Suspect]
     Active Substance: CELECOXIB
     Indication: Infection
     Dosage: 200 MILLIGRAM, BID,CELEBREX
     Route: 048
     Dates: start: 20181221, end: 20190110
  2. CELECOXIB [Suspect]
     Active Substance: CELECOXIB
     Dosage: 200 MILLIGRAM, QD,CELEBREX
     Route: 065
     Dates: start: 20190113, end: 20190114
  3. MOXIFLOXACIN [Concomitant]
     Active Substance: MOXIFLOXACIN
     Indication: Infection
     Dosage: UNK
     Route: 065
     Dates: start: 20190113, end: 20190114
  4. TRAMADOL HYDROCHLORIDE [Concomitant]
     Active Substance: TRAMADOL HYDROCHLORIDE
     Indication: Infection
     Dosage: 100 MILLIGRAM, BID, 12 HOUR
     Route: 048
     Dates: start: 20181221, end: 20190110
  5. CEFAMANDOLE NAFATE [Concomitant]
     Active Substance: CEFAMANDOLE NAFATE
     Indication: Infection
     Dosage: 2 GRAM, BID, I.V.GTT, Q12H
     Route: 042
     Dates: start: 20181221, end: 20190110
  6. CALCITRIOL [Concomitant]
     Active Substance: CALCITRIOL
     Indication: Infection
     Dosage: 0.5 MICROGRAM, BID, 12 HOUR
     Route: 048
     Dates: start: 20181221, end: 20190106
  7. Escin spdium [Concomitant]
     Indication: Swelling
     Dosage: 60 MILLIGRAM, BID
     Route: 048
     Dates: start: 20181227, end: 20190110

REACTIONS (3)
  - Rash papular [Recovered/Resolved]
  - Erythema [Recovered/Resolved]
  - Pyrexia [Recovered/Resolved]

NARRATIVE: CASE EVENT DATE: 20190106
